FAERS Safety Report 6574830-4 (Version None)
Quarter: 2010Q1

REPORT INFORMATION
  Report Type: 
  Country: None (occurrence: None)
  Receive Date: 20100202
  Receipt Date: 20100121
  Transmission Date: 20100710
  Serious: No
  Sender: FDA-Public Use
  Company Number: 20097736

PATIENT
  Sex: Male

DRUGS (1)
  1. LIORESAL [Suspect]
     Indication: MUSCLE SPASTICITY
     Dosage: 200 MCG, DAILY, INTRATHECAL- SEE B
     Route: 037

REACTIONS (5)
  - LUMBAR SPINAL STENOSIS [None]
  - MYELITIS TRANSVERSE [None]
  - POSTURE ABNORMAL [None]
  - SPINAL OSTEOARTHRITIS [None]
  - UNDERDOSE [None]
